FAERS Safety Report 12507639 (Version 5)
Quarter: 2016Q3

REPORT INFORMATION
  Report Type: Report from Study
  Country: MX (occurrence: MX)
  Receive Date: 20160629
  Receipt Date: 20160927
  Transmission Date: 20161109
  Serious: Yes (Hospitalization, Other)
  Sender: FDA-Public Use
  Company Number: PHHY2016MX088614

PATIENT
  Age: 91 Year
  Sex: Female
  Weight: 76 kg

DRUGS (15)
  1. EXELON PATCH [Suspect]
     Active Substance: RIVASTIGMINE
     Dosage: 9.5 MG, PATCH 10 (CM2) 1 AND 1/2 PATCH
     Route: 062
  2. EXELON PATCH [Suspect]
     Active Substance: RIVASTIGMINE
     Dosage: 9.5 MG, QD PATCH 10 (CM2)
     Route: 062
     Dates: start: 20160615
  3. TYLEX                              /00116401/ [Concomitant]
     Active Substance: ACETAMINOPHEN\CODEINE PHOSPHATE
     Indication: PRODUCT USED FOR UNKNOWN INDICATION
     Dosage: 750 OT, QD AND THEN TO SUSPEND
     Route: 065
  4. CRONOCAPS [Concomitant]
     Indication: SLEEP DISORDER
     Dosage: 1 DF, QD
     Route: 048
     Dates: start: 201607
  5. EXELON PATCH [Suspect]
     Active Substance: RIVASTIGMINE
     Indication: SENILE DEMENTIA
     Dosage: 9.5 MG, QD, PATCH 10 (CM2)
     Route: 062
     Dates: start: 2013, end: 20160614
  6. EXELON PATCH [Suspect]
     Active Substance: RIVASTIGMINE
     Dosage: 9.5 MG, PATCH 10 (CM2) 1 AND 1/4 PATCH
     Route: 062
  7. EBIXA [Concomitant]
     Active Substance: MEMANTINE HYDROCHLORIDE
     Indication: SENILE DEMENTIA
     Dosage: 10 MG, Q12H
     Route: 048
     Dates: start: 201301
  8. BENTYL [Concomitant]
     Active Substance: DICYCLOMINE HYDROCHLORIDE
     Indication: PRODUCT USED FOR UNKNOWN INDICATION
     Dosage: 1 DF, Q12H
     Route: 065
  9. MOTILIUM [Concomitant]
     Active Substance: DOMPERIDONE
     Indication: GASTROINTESTINAL MOTILITY DISORDER
     Dosage: 3 DF (10 MG), QD
     Route: 048
     Dates: start: 201607
  10. METOPROLOL. [Concomitant]
     Active Substance: METOPROLOL
     Indication: HYPERTENSION
     Dosage: 0.25 DF, (1/4 OF 95 MG)
     Route: 048
  11. MACRODANTIN [Concomitant]
     Active Substance: NITROFURANTOIN
     Indication: PRODUCT USED FOR UNKNOWN INDICATION
     Dosage: 1 DF, BID (1-0-1)
     Route: 065
  12. RANISEN [Concomitant]
     Indication: PRODUCT USED FOR UNKNOWN INDICATION
     Route: 065
  13. QUETIAPINE. [Concomitant]
     Active Substance: QUETIAPINE
     Indication: SLEEP DISORDER
     Dosage: 0.5 DF (25 MG), QD
     Route: 048
     Dates: start: 201407
  14. PANTOPRAZOLE [Concomitant]
     Active Substance: PANTOPRAZOLE SODIUM
     Indication: GASTRITIS
     Dosage: 0.5 DF, (1/2 OF 25 MG)
     Route: 048
     Dates: start: 201606
  15. ONBREZ BREEZHALER [Suspect]
     Active Substance: INDACATEROL
     Indication: HYPOXIA
     Dosage: 150 UG, QD
     Route: 055
     Dates: start: 201312

REACTIONS (9)
  - Wrong technique in product usage process [Recovered/Resolved]
  - Hypertension [Recovered/Resolved]
  - Escherichia urinary tract infection [Unknown]
  - Drug intolerance [Unknown]
  - Malaise [Unknown]
  - Electrolyte imbalance [Recovered/Resolved]
  - Incoherent [Recovering/Resolving]
  - Drug prescribing error [Recovered/Resolved]
  - Product use issue [Not Recovered/Not Resolved]

NARRATIVE: CASE EVENT DATE: 201605
